FAERS Safety Report 23778193 (Version 2)
Quarter: 2024Q2

REPORT INFORMATION
  Report Type: Other
  Country: US (occurrence: None)
  Receive Date: 20240424
  Receipt Date: 20240610
  Transmission Date: 20240716
  Serious: Yes (Other)
  Sender: FDA-Public Use
  Company Number: US-ROCHE-3547952

PATIENT
  Age: 65 Year
  Sex: Female
  Weight: 54.48 kg

DRUGS (1)
  1. XOLAIR [Suspect]
     Active Substance: OMALIZUMAB
     Indication: Idiopathic urticaria
     Route: 058
     Dates: start: 2015

REACTIONS (5)
  - Anaphylactic reaction [Unknown]
  - Fall [Unknown]
  - Spinal fracture [Recovered/Resolved]
  - Dysstasia [Not Recovered/Not Resolved]
  - Asthma [Unknown]
